FAERS Safety Report 10181947 (Version 2)
Quarter: 2014Q3

REPORT INFORMATION
  Report Type: Spontaneous
  Country: US (occurrence: US)
  Receive Date: 20140519
  Receipt Date: 20140825
  Transmission Date: 20150326
  Serious: No
  Sender: FDA-Public Use
  Company Number: US-GILEAD-2014-0102682

PATIENT
  Age: 64 Year
  Sex: Female

DRUGS (5)
  1. RIOCIGUAT [Concomitant]
     Active Substance: RIOCIGUAT
  2. LETAIRIS [Suspect]
     Active Substance: AMBRISENTAN
     Indication: VENTRICULAR SEPTAL DEFECT
  3. LETAIRIS [Suspect]
     Active Substance: AMBRISENTAN
     Indication: EISENMENGER^S SYNDROME
  4. LETAIRIS [Suspect]
     Active Substance: AMBRISENTAN
     Indication: PULMONARY ARTERIAL HYPERTENSION
     Dosage: 10 MG, QD
     Route: 065
     Dates: start: 20100804
  5. TYVASO [Concomitant]
     Active Substance: TREPROSTINIL

REACTIONS (1)
  - Fluid retention [Unknown]
